FAERS Safety Report 24622294 (Version 2)
Quarter: 2025Q3

REPORT INFORMATION
  Report Type: Report from Study
  Country: ZA (occurrence: ZA)
  Receive Date: 20241114
  Receipt Date: 20250803
  Transmission Date: 20251021
  Serious: Yes (Death, Other)
  Sender: ALEXION PHARMACEUTICALS
  Company Number: ZA-AstraZeneca-CH-00738485A

PATIENT
  Age: 76 Year
  Sex: Male

DRUGS (9)
  1. DAPAGLIFLOZIN [Suspect]
     Active Substance: DAPAGLIFLOZIN
  2. Forrester pregabalin [Concomitant]
     Route: 065
  3. CARBIDOPA LEVODOPA [Concomitant]
     Active Substance: CARBIDOPA\LEVODOPA
     Route: 065
  4. BISOPROLOL FUMARATE\HYDROCHLOROTHIAZIDE [Concomitant]
     Active Substance: BISOPROLOL FUMARATE\HYDROCHLOROTHIAZIDE
  5. Simvastatin almus [Concomitant]
     Route: 065
  6. DEXPRAMIPEXOLE DIHYDROCHLORIDE [Concomitant]
     Active Substance: DEXPRAMIPEXOLE DIHYDROCHLORIDE
     Route: 065
  7. Acetic acid;Calcium chloride dihydrate;Glucose monohydrate;Magnesium c [Concomitant]
     Route: 065
  8. ASPIRIN [Concomitant]
     Active Substance: ASPIRIN
     Route: 065
  9. Escitalopram alter [Concomitant]
     Route: 065

REACTIONS (3)
  - Cystitis [Fatal]
  - Pneumonia [Fatal]
  - Renal failure [Fatal]
